FAERS Safety Report 23126523 (Version 2)
Quarter: 2023Q4

REPORT INFORMATION
  Report Type: Spontaneous
  Country: US (occurrence: US)
  Receive Date: 20231030
  Receipt Date: 20231114
  Transmission Date: 20240109
  Serious: Yes (Hospitalization, Other)
  Sender: FDA-Public Use
  Company Number: US-MLMSERVICE-20231023-4617684-1

PATIENT
  Age: 16 Year
  Sex: Female
  Weight: 72 kg

DRUGS (1)
  1. LOPERAMIDE HYDROCHLORIDE [Suspect]
     Active Substance: LOPERAMIDE HYDROCHLORIDE
     Indication: Euphoric mood
     Dosage: HIGH-DOSE
     Route: 048

REACTIONS (5)
  - Intentional product misuse [Recovered/Resolved]
  - Constipation [Recovering/Resolving]
  - Urinary retention [Recovering/Resolving]
  - Dizziness [Recovering/Resolving]
  - Syncope [Recovering/Resolving]
